FAERS Safety Report 4622955-2 (Version None)
Quarter: 2005Q1

REPORT INFORMATION
  Report Type: 
  Country: None (occurrence: None)
  Receive Date: 20050329
  Receipt Date: 20050314
  Transmission Date: 20050727
  Serious: Yes (Death)
  Sender: FDA-Public Use
  Company Number: 10604

PATIENT
  Sex: Female

DRUGS (6)
  1. CYTARABINE [Suspect]
     Indication: ACUTE LYMPHOCYTIC LEUKAEMIA
     Dosage: 75 MG/M2
  2. DEXAMETHASONE [Suspect]
     Indication: ACUTE LYMPHOCYTIC LEUKAEMIA
     Dosage: 10 MG/M2
  3. VINCRISTINE [Suspect]
     Indication: ACUTE LYMPHOCYTIC LEUKAEMIA
  4. ASPARAGINASE [Suspect]
     Indication: ACUTE LYMPHOCYTIC LEUKAEMIA
  5. CYCLOPHOSPHAMIDE [Suspect]
     Indication: ACUTE LYMPHOCYTIC LEUKAEMIA
  6. METHOTREXATE [Concomitant]

REACTIONS (22)
  - ADENOVIRAL HEPATITIS [None]
  - ASCITES INFECTION [None]
  - CEREBRAL HAEMORRHAGE [None]
  - COAGULOPATHY [None]
  - CULTURE STOOL POSITIVE [None]
  - CULTURE THROAT POSITIVE [None]
  - CULTURE URINE POSITIVE [None]
  - DIARRHOEA [None]
  - ENTEROCOLITIS HAEMORRHAGIC [None]
  - FEBRILE NEUTROPENIA [None]
  - GASTRITIS [None]
  - GENERAL PHYSICAL HEALTH DETERIORATION [None]
  - HEPATIC FAILURE [None]
  - HEPATIC HAEMORRHAGE [None]
  - HEPATIC NECROSIS [None]
  - HEPATITIS ACUTE [None]
  - HEPATOMEGALY [None]
  - IRRITABILITY [None]
  - LIVER ABSCESS [None]
  - SUBARACHNOID HAEMORRHAGE [None]
  - THERAPY NON-RESPONDER [None]
  - VOMITING [None]
